FAERS Safety Report 7095150-8 (Version None)
Quarter: 2010Q4

REPORT INFORMATION
  Report Type: 
  Country: None (occurrence: None)
  Receive Date: 20101109
  Receipt Date: 20101109
  Transmission Date: 20110411
  Serious: Yes (Hospitalization)
  Sender: FDA-Public Use
  Company Number: None

PATIENT
  Age: 59 Year
  Sex: Male
  Weight: 61.3 kg

DRUGS (1)
  1. CYANOKIT [Suspect]
     Indication: THERAPEUTIC AGENT TOXICITY
     Dosage: 5G ONCE OVER 15 MIN IV DRIP
     Route: 041
     Dates: start: 20101026, end: 20101026

REACTIONS (2)
  - DEVICE LEAKAGE [None]
  - MEDICAL DEVICE COMPLICATION [None]
